FAERS Safety Report 8707967 (Version 8)
Quarter: 2013Q1

REPORT INFORMATION
  Report Type: Spontaneous
  Country: US (occurrence: None)
  Receive Date: 20120718
  Receipt Date: 20130329
  Transmission Date: 20140127
  Serious: Yes (Hospitalization, Other)
  Sender: FDA-Public Use
  Company Number: ACO_31020_2012

PATIENT
  Age: 42 Year
  Sex: Female
  Weight: 55.3 kg

DRUGS (14)
  1. AMPYRA [Suspect]
     Indication: GAIT DISTURBANCE
     Dosage: 10 MG, Q 12 HRS
     Route: 048
     Dates: start: 201009, end: 201211
  2. TEGRETOL (CARBAMAZEPINE) UNKNOWN [Suspect]
     Indication: TRIGEMINAL NEURALGIA
     Dates: start: 201202, end: 201206
  3. TYSABRI (NATALIZUMAB) [Concomitant]
  4. GABAPENTIN(GABAPENTIN) [Concomitant]
  5. FLUCONAZOLE (FLUCONAZOLE) [Concomitant]
  6. LEVAQUIN (LEVOLOXACIN) [Concomitant]
  7. ACYCLOVIR (ACICLOVIR) [Concomitant]
  8. PENTAMIDINE (PENTAMIDINE ISETHIONATE) [Concomitant]
  9. TRILEPTAL (OXCARBAZEPINE) [Suspect]
     Dates: end: 2011
  10. LYRICA (PREGABALIN) [Concomitant]
  11. OMEPRAZOLE (OMEPRAZOLE) [Concomitant]
  12. OXYCODONE AND ACETAMINOPHEN (OXYCODONE HYDROCHLORIDE, PARACETAMOL) [Concomitant]
  13. AMLODIPINE (AMLODIPINE BESILATE) [Concomitant]
  14. PHENERGAN (PROMETHAZINE HYDROCHLORIDE) [Concomitant]

REACTIONS (19)
  - Aplastic anaemia [None]
  - Therapeutic response decreased [None]
  - Product quality issue [None]
  - Tablet physical issue [None]
  - Product commingling [None]
  - Trigeminal neuralgia [None]
  - Cytomegalovirus test positive [None]
  - Otitis media [None]
  - Hypertension [None]
  - Transaminases increased [None]
  - Hyperglycaemia [None]
  - Multiple sclerosis [None]
  - Constipation [None]
  - Drug level above therapeutic [None]
  - Malaise [None]
  - Mouth ulceration [None]
  - Arthropod bite [None]
  - Diarrhoea [None]
  - Urinary tract infection [None]
